FAERS Safety Report 12230616 (Version 2)
Quarter: 2016Q2

REPORT INFORMATION
  Report Type: Spontaneous
  Country: PE (occurrence: PE)
  Receive Date: 20160401
  Receipt Date: 20160408
  Transmission Date: 20160815
  Serious: No
  Sender: FDA-Public Use
  Company Number: PE-PFIZER INC-2016181339

PATIENT
  Age: 77 Year
  Sex: Male

DRUGS (1)
  1. XALATAN [Suspect]
     Active Substance: LATANOPROST
     Indication: GLAUCOMA
     Dosage: 1 GTT, DAILY (IN EACH EYE)
     Route: 047

REACTIONS (4)
  - Sleep disorder [Unknown]
  - Cataract [Unknown]
  - Syncope [Not Recovered/Not Resolved]
  - General physical condition abnormal [Not Recovered/Not Resolved]
